APPROVED DRUG PRODUCT: DOXYCYCLINE HYCLATE
Active Ingredient: DOXYCYCLINE HYCLATE
Strength: EQ 100MG BASE
Dosage Form/Route: CAPSULE;ORAL
Application: A062594 | Product #002
Applicant: WARNER CHILCOTT DIV WARNER LAMBERT CO
Approved: Dec 5, 1985 | RLD: No | RS: No | Type: DISCN